FAERS Safety Report 11472467 (Version 1)
Quarter: 2015Q3

REPORT INFORMATION
  Report Type: Spontaneous
  Country: US (occurrence: US)
  Receive Date: 20150908
  Receipt Date: 20150908
  Transmission Date: 20151125
  Serious: No
  Sender: FDA-Public Use
  Company Number: US-BAYER-2015-408640

PATIENT

DRUGS (1)
  1. MIDOL EXTENDED RELIEF [Suspect]
     Active Substance: NAPROXEN SODIUM

REACTIONS (6)
  - Muscle spasms [None]
  - Crying [None]
  - Drug ineffective [None]
  - Movement disorder [None]
  - Feeling abnormal [None]
  - Insomnia [None]
